FAERS Safety Report 4503691-X (Version None)
Quarter: 2004Q4

REPORT INFORMATION
  Report Type: 
  Country: None (occurrence: None)
  Receive Date: 20040928
  Receipt Date: 20040610
  Transmission Date: 20050328
  Serious: No
  Sender: FDA-Public Use
  Company Number: 04P-163-0263483-00

PATIENT
  Sex: Female
  Weight: 78.9259 kg

DRUGS (2)
  1. HUMIRA [Suspect]
     Indication: RHEUMATOID ARTHRITIS
     Dosage: 40 MG, 1 IN 2 WK, SUBCUTANEOUS
     Route: 058
     Dates: start: 20040310, end: 20040519
  2. METHOTREXATE [Concomitant]

REACTIONS (4)
  - ANAEMIA [None]
  - NERVOUSNESS [None]
  - RASH [None]
  - SINUSITIS [None]
